FAERS Safety Report 19255582 (Version 1)
Quarter: 2021Q2

REPORT INFORMATION
  Report Type: Spontaneous
  Country: US (occurrence: US)
  Receive Date: 20210513
  Receipt Date: 20210513
  Transmission Date: 20210717
  Serious: Yes (Other)
  Sender: FDA-Public Use
  Company Number: US-GLAXOSMITHKLINE-USCH2021026510

PATIENT
  Age: 65 Year
  Sex: Female

DRUGS (1)
  1. SENSODYNE PRONAMEL INTENSIVE ENAMEL REPAIR EXTRA FRESH [Suspect]
     Active Substance: POTASSIUM NITRATE\SODIUM FLUORIDE
     Indication: DENTAL DISORDER PROPHYLAXIS

REACTIONS (13)
  - Oral discomfort [Unknown]
  - Mouth swelling [Unknown]
  - Feeding disorder [Unknown]
  - Burn oral cavity [Unknown]
  - Oral pain [Unknown]
  - Weight decreased [Unknown]
  - Toothache [Unknown]
  - Scar inflammation [Unknown]
  - Skin disorder [Unknown]
  - Pain [Unknown]
  - Hypersensitivity [Unknown]
  - Chapped lips [Unknown]
  - Skin wrinkling [Unknown]
